FAERS Safety Report 7463958-2 (Version None)
Quarter: 2011Q2

REPORT INFORMATION
  Report Type: 
  Country: None (occurrence: None)
  Receive Date: 20110506
  Receipt Date: 20110421
  Transmission Date: 20111010
  Serious: No
  Sender: FDA-Public Use
  Company Number: US-B.I. PHARMACEUTICALS,INC./RIDGEFIELD-2011-BP-06111BP

PATIENT
  Sex: Female

DRUGS (8)
  1. PRADAXA [Suspect]
     Indication: CARDIAC DISORDER
  2. NATURE'S CODE FOR WOMEN [Concomitant]
     Indication: PROPHYLAXIS
     Dosage: 40 MG
     Route: 048
  3. WARFARIN [Concomitant]
  4. VITAMIN B-12 [Concomitant]
     Route: 060
  5. PRADAXA [Suspect]
     Indication: ATRIAL FIBRILLATION
     Dosage: 300 MG
     Route: 048
     Dates: end: 20110217
  6. PRAVASTATIN [Concomitant]
     Indication: BLOOD CHOLESTEROL INCREASED
     Dosage: 40 MG
     Route: 048
  7. VITAMIN D [Concomitant]
     Indication: PROPHYLAXIS
     Dosage: 500 MG
     Route: 048
  8. AMLODIPINE BESYLATE [Concomitant]
     Indication: HYPERTENSION
     Dosage: 10 MG
     Route: 048

REACTIONS (3)
  - GINGIVAL BLEEDING [None]
  - SKIN DISCOLOURATION [None]
  - DYSPEPSIA [None]
